FAERS Safety Report 8567249 (Version 2)
Quarter: 2013Q1

REPORT INFORMATION
  Report Type: Spontaneous
  Country: US (occurrence: US)
  Receive Date: 20120517
  Receipt Date: 20130308
  Transmission Date: 20140127
  Serious: Yes (Other)
  Sender: FDA-Public Use
  Company Number: US-ENDO PHARMACEUTICALS INC.-OPCR20120620

PATIENT
  Sex: Female
  Weight: 51.3 kg

DRUGS (4)
  1. OPANA ER [Suspect]
     Indication: ARTHRALGIA
     Route: 048
     Dates: start: 20120306, end: 20120627
  2. OPANA ER [Suspect]
     Route: 048
     Dates: start: 20120306, end: 20120627
  3. NORCO [Concomitant]
     Indication: ARTHRALGIA
     Route: 048
     Dates: start: 20120306, end: 20120627
  4. ADDERALL [Concomitant]
     Indication: PRODUCT USED FOR UNKNOWN INDICATION
     Dosage: UNK
     Route: 048

REACTIONS (3)
  - Intentional drug misuse [Recovered/Resolved]
  - Tinnitus [Recovered/Resolved]
  - Drug ineffective [Recovered/Resolved]
